FAERS Safety Report 6161620-X (Version None)
Quarter: 2009Q2

REPORT INFORMATION
  Report Type: 
  Country: None (occurrence: None)
  Receive Date: 20090421
  Receipt Date: 20090415
  Transmission Date: 20091009
  Serious: Yes (Death)
  Sender: FDA-Public Use
  Company Number: US-ROXANE LABORATORIES, INC.-2009-RO-00388RO

PATIENT
  Sex: Male

DRUGS (15)
  1. CITALOPRAM HYDROBROMIDE [Suspect]
  2. MORPHINE [Suspect]
  3. COCAINE [Suspect]
  4. ALPRAZOLAM [Suspect]
  5. XYLAZINE [Suspect]
  6. FENTANYL [Suspect]
  7. BENZOYLECGONINE [Suspect]
  8. 6-ACETYLMORPHINE [Suspect]
  9. COCAETHYLENE [Suspect]
  10. ECGONINE METHYL ESTER [Suspect]
  11. DILTIAZEM [Suspect]
  12. MIRTAZAPINE [Suspect]
  13. PROCAINE HCL [Suspect]
  14. QUININE/QUINIDINE [Suspect]
  15. HEROIN [Concomitant]

REACTIONS (1)
  - DEATH [None]
